FAERS Safety Report 7135011-9 (Version None)
Quarter: 2010Q4

REPORT INFORMATION
  Report Type: 
  Country: None (occurrence: None)
  Receive Date: 20101203
  Receipt Date: 20101201
  Transmission Date: 20110411
  Serious: Yes (Hospitalization)
  Sender: FDA-Public Use
  Company Number: AU-MERCK-0710AUS00152

PATIENT
  Age: 77 Year
  Sex: Female
  Weight: 128 kg

DRUGS (13)
  1. ZOCOR [Suspect]
     Route: 048
  2. ZOCOR [Suspect]
     Route: 048
  3. ERYTHROMYCIN [Suspect]
     Indication: CELLULITIS
     Route: 048
     Dates: start: 20070214, end: 20070311
  4. FUROSEMIDE [Concomitant]
     Route: 065
  5. METFORMIN HYDROCHLORIDE [Concomitant]
     Route: 065
  6. POTASSIUM CHLORIDE [Concomitant]
     Route: 065
  7. SPIRONOLACTONE [Concomitant]
     Route: 065
  8. ALLOPURINOL [Concomitant]
     Route: 065
  9. AMIODARONE HYDROCHLORIDE [Concomitant]
     Route: 065
  10. LEVOTHYROXINE SODIUM [Concomitant]
     Route: 065
  11. BISOPROLOL FUMARATE [Concomitant]
     Route: 065
  12. CIPROFLOXACIN [Concomitant]
     Route: 065
  13. WARFARIN SODIUM [Concomitant]
     Route: 065

REACTIONS (3)
  - DRUG INTERACTION [None]
  - RENAL FAILURE [None]
  - RHABDOMYOLYSIS [None]
